FAERS Safety Report 19709985 (Version 12)
Quarter: 2023Q1

REPORT INFORMATION
  Report Type: Report from Study
  Country: PL (occurrence: PL)
  Receive Date: 20210817
  Receipt Date: 20230131
  Transmission Date: 20230418
  Serious: Yes (Life-Threatening, Hospitalization)
  Sender: FDA-Public Use
  Company Number: PL-EXELIXIS-XL18421039084

PATIENT

DRUGS (18)
  1. CABOZANTINIB [Suspect]
     Active Substance: CABOZANTINIB
     Indication: Metastatic renal cell carcinoma
     Dosage: 60 MG, QD
     Route: 048
     Dates: start: 20210310
  2. CABOZANTINIB [Suspect]
     Active Substance: CABOZANTINIB
     Dosage: UNK
     Route: 048
  3. ATEZOLIZUMAB [Suspect]
     Active Substance: ATEZOLIZUMAB
     Indication: Metastatic renal cell carcinoma
     Dosage: 1200 MG, Q3WEEKS
     Route: 041
     Dates: start: 20210310
  4. NIVOLUMAB [Concomitant]
     Active Substance: NIVOLUMAB
     Dosage: UNK
     Dates: start: 20201110, end: 20210218
  5. LEVOTHYROXINE SODIUM [Concomitant]
     Active Substance: LEVOTHYROXINE SODIUM
     Indication: Hypothyroidism
     Dosage: 75 UG, QD
     Route: 048
     Dates: start: 2020, end: 20210420
  6. LEVOTHYROXINE SODIUM [Concomitant]
     Active Substance: LEVOTHYROXINE SODIUM
     Dosage: 100 UG, QD
     Route: 048
     Dates: start: 20210413, end: 20210511
  7. CANDESARTAN CILEXETIL [Concomitant]
     Active Substance: CANDESARTAN CILEXETIL
     Indication: Hypertension
     Dosage: 16 MG, QD
     Route: 048
     Dates: start: 2016, end: 20210330
  8. Amlopin [Concomitant]
     Indication: Hypertension
     Dosage: 10 MG, QD
     Route: 048
     Dates: start: 2016, end: 20210330
  9. METOPROLOL SUCCINATE [Concomitant]
     Active Substance: METOPROLOL SUCCINATE
     Indication: Hypertension
     Dosage: 25 MG, QD
     Route: 048
     Dates: start: 2016, end: 20210330
  10. METOPROLOL SUCCINATE [Concomitant]
     Active Substance: METOPROLOL SUCCINATE
     Dosage: 50 MG, QD
     Route: 048
     Dates: start: 20210331
  11. RAMIPRIL [Concomitant]
     Active Substance: RAMIPRIL
     Indication: Hypertension
     Dosage: 10 MG, QD
     Route: 048
     Dates: start: 20210331, end: 20210620
  12. LECALPIN [Concomitant]
     Indication: Hypertension
     Dosage: 10 MG, QD
     Route: 048
     Dates: start: 20210331, end: 20210620
  13. DOXANORM [Concomitant]
     Indication: Hypertension
     Dosage: 2 MG, QD
     Route: 048
     Dates: start: 20210331, end: 20210620
  14. FUROSEMIDE [Concomitant]
     Active Substance: FUROSEMIDE
     Indication: Hypertension
     Dosage: 1 {DF}, QD
     Route: 048
     Dates: start: 20210331, end: 20211006
  15. SPIRONOLACTONE [Concomitant]
     Active Substance: SPIRONOLACTONE
     Indication: Hypertension
     Dosage: 25 MG, QD
     Route: 048
     Dates: start: 20210331, end: 20211116
  16. HEPATIL [Concomitant]
     Dosage: 3 {DF}, QD
     Route: 048
     Dates: start: 20210413
  17. FLUDROCORTISONE [Concomitant]
     Active Substance: FLUDROCORTISONE
     Dosage: 0.1 MG, QD
     Route: 048
     Dates: start: 20210413
  18. Calperos [Concomitant]
     Dosage: 1000 MG, QD
     Route: 048
     Dates: start: 20210413

REACTIONS (2)
  - Neutropenia [Recovered/Resolved]
  - Immune-mediated lung disease [Recovered/Resolved]

NARRATIVE: CASE EVENT DATE: 20210316
